FAERS Safety Report 15602889 (Version 1)
Quarter: 2018Q4

REPORT INFORMATION
  Report Type: Spontaneous
  Country: US (occurrence: US)
  Receive Date: 20181109
  Receipt Date: 20181109
  Transmission Date: 20190205
  Serious: Yes (Hospitalization)
  Sender: FDA-Public Use
  Company Number: US-AMGEN-USASP2017000710

PATIENT
  Age: 32 Year
  Sex: Female

DRUGS (3)
  1. PROLIA [Suspect]
     Active Substance: DENOSUMAB
     Indication: OSTEOPOROSIS
     Dosage: 60 MG, UNK
     Route: 058
  2. PROLIA [Suspect]
     Active Substance: DENOSUMAB
     Indication: OSTEOMALACIA
  3. PROLIA [Suspect]
     Active Substance: DENOSUMAB
     Indication: VITAMIN D DEFICIENCY

REACTIONS (4)
  - Paraesthesia [Unknown]
  - Hypocalcaemia [Recovered/Resolved]
  - Tetany [Unknown]
  - Hypoaesthesia [Unknown]
